FAERS Safety Report 9649677 (Version 2)
Quarter: 2013Q4

REPORT INFORMATION
  Report Type: Spontaneous
  Country: US (occurrence: US)
  Receive Date: 20131028
  Receipt Date: 20131204
  Transmission Date: 20140711
  Serious: Yes (Hospitalization)
  Sender: FDA-Public Use
  Company Number: US-009507513-1310USA009196

PATIENT
  Age: 29 Year
  Sex: Female
  Weight: 116.1 kg

DRUGS (2)
  1. IMPLANON [Suspect]
     Indication: CONTRACEPTION
     Dosage: 1 ROD UP TO 3 YRS
     Route: 059
     Dates: start: 20111014
  2. ANTIMICROBIAL (UNSPECIFIED) [Concomitant]

REACTIONS (8)
  - Dehydration [Unknown]
  - Urinary tract infection [Unknown]
  - Hypertension [Unknown]
  - Palpitations [Unknown]
  - Device breakage [Unknown]
  - Device dislocation [Unknown]
  - Implant site pain [Unknown]
  - Medical device complication [Unknown]
